FAERS Safety Report 18733603 (Version 1)
Quarter: 2021Q1

REPORT INFORMATION
  Report Type: Report from Study
  Country: None (occurrence: KR)
  Receive Date: 20210113
  Receipt Date: 20210113
  Transmission Date: 20210419
  Serious: Yes (Death, Hospitalization)
  Sender: FDA-Public Use
  Company Number: KR-ABBVIE-21K-090-3726954-00

PATIENT
  Age: 79 Year
  Sex: Female

DRUGS (18)
  1. LANSTON LFDT [Concomitant]
     Active Substance: LANSOPRAZOLE
     Indication: GASTRIC ULCER
     Route: 048
     Dates: start: 20200704, end: 20201130
  2. LASIX [Concomitant]
     Active Substance: FUROSEMIDE
     Indication: GLOMERULONEPHRITIS MEMBRANOPROLIFERATIVE
     Route: 048
     Dates: start: 20201104, end: 20201130
  3. FEROBA YOU [Concomitant]
     Indication: ANAEMIA PROPHYLAXIS
     Dosage: SUSTAINED RELEASE
     Route: 048
     Dates: start: 20200721, end: 20201130
  4. TANJENTA [Concomitant]
     Indication: DIABETES MELLITUS
     Route: 048
     Dates: start: 20200706, end: 20201130
  5. FOLIC ACID. [Concomitant]
     Active Substance: FOLIC ACID
     Indication: BASEDOW^S DISEASE
     Route: 048
     Dates: start: 20200911, end: 20201110
  6. ALDACTONE [Concomitant]
     Active Substance: SPIRONOLACTONE
     Indication: GLOMERULONEPHRITIS MEMBRANOPROLIFERATIVE
     Route: 048
     Dates: start: 20201104, end: 20201130
  7. SOLONDO [Concomitant]
     Active Substance: PREDNISOLONE
     Indication: GLOMERULONEPHRITIS MEMBRANOPROLIFERATIVE
     Route: 048
     Dates: start: 20201110, end: 20201130
  8. POLYBUTINE [Concomitant]
     Indication: GASTRIC ULCER
     Route: 048
     Dates: start: 20201028, end: 20201130
  9. JOINS [Concomitant]
     Indication: SPINAL STENOSIS
     Route: 048
     Dates: start: 20201028, end: 20201130
  10. TWOLION [Concomitant]
     Indication: ALLERGY PROPHYLAXIS
     Route: 048
     Dates: start: 20201030, end: 20201130
  11. JANUMET [Concomitant]
     Active Substance: METFORMIN HYDROCHLORIDE\SITAGLIPTIN PHOSPHATE
     Indication: DIABETES MELLITUS
     Dosage: XR 50/500MG
     Route: 048
     Dates: start: 20201118, end: 20201130
  12. MAVIRET [Suspect]
     Active Substance: GLECAPREVIR\PIBRENTASVIR
     Indication: CHRONIC HEPATITIS C
     Route: 048
     Dates: start: 20201014, end: 20201210
  13. URSA [Concomitant]
     Active Substance: URSODIOL
     Indication: HEPATIC FUNCTION ABNORMAL
     Route: 048
     Dates: start: 20201028, end: 20201130
  14. METHIMAZOLE. [Concomitant]
     Active Substance: METHIMAZOLE
     Indication: BASEDOW^S DISEASE
     Route: 048
     Dates: start: 20200904, end: 20201110
  15. TELMIONE [Concomitant]
     Indication: HYPERTENSION
     Route: 048
     Dates: start: 20201029, end: 20201108
  16. ROWACHOL [Concomitant]
     Active Substance: HERBALS
     Indication: PROPHYLAXIS
     Route: 048
     Dates: start: 20201030, end: 20201130
  17. GLUCOPHAGE [Concomitant]
     Active Substance: METFORMIN HYDROCHLORIDE
     Indication: DIABETES MELLITUS
     Route: 048
     Dates: start: 20201030, end: 20201130
  18. SEPTRIN [Concomitant]
     Active Substance: SULFAMETHOXAZOLE\TRIMETHOPRIM
     Indication: GLOMERULONEPHRITIS MEMBRANOPROLIFERATIVE
     Route: 048
     Dates: start: 20201118, end: 20201130

REACTIONS (2)
  - Glomerulonephritis membranoproliferative [Fatal]
  - Glomerulonephritis membranoproliferative [Recovered/Resolved]

NARRATIVE: CASE EVENT DATE: 20201028
